FAERS Safety Report 7115194-7 (Version None)
Quarter: 2010Q4

REPORT INFORMATION
  Report Type: 
  Country: None (occurrence: None)
  Receive Date: 20101122
  Receipt Date: 20101110
  Transmission Date: 20110411
  Serious: Yes (Hospitalization)
  Sender: FDA-Public Use
  Company Number: US-JNJFOC-20101105508

PATIENT
  Sex: Female
  Weight: 74.57 kg

DRUGS (5)
  1. GOLIMUMAB [Suspect]
     Indication: PSORIASIS
     Route: 058
  2. REMICADE [Suspect]
     Indication: PSORIASIS
     Route: 042
  3. ACITRETIN [Concomitant]
  4. CYCLOSPORINE [Concomitant]
  5. VITAMIN D [Concomitant]
     Route: 061

REACTIONS (1)
  - CELLULITIS [None]
